FAERS Safety Report 13600622 (Version 6)
Quarter: 2017Q4

REPORT INFORMATION
  Report Type: Spontaneous
  Country: GB (occurrence: GB)
  Receive Date: 20170601
  Receipt Date: 20171106
  Transmission Date: 20180320
  Serious: Yes (Hospitalization)
  Sender: FDA-Public Use
  Company Number: GB-AUROBINDO-AUR-APL-2017-34564

PATIENT
  Age: 16 Year
  Sex: Female
  Weight: 66.4 kg

DRUGS (7)
  1. LYRICA [Suspect]
     Active Substance: PREGABALIN
     Indication: ANXIETY
     Dosage: 200 MG, TWO TIMES A DAY
     Route: 048
     Dates: start: 201609, end: 2017
  2. LYRICA [Suspect]
     Active Substance: PREGABALIN
     Indication: POST-TRAUMATIC STRESS DISORDER
     Dosage: 150 MG, TWO TIMES A DAY
     Route: 048
     Dates: start: 2017, end: 2017
  3. RISPERIDONE. [Suspect]
     Active Substance: RISPERIDONE
     Indication: AFFECTIVE DISORDER
     Dosage: 7 MG, DAILY
     Route: 048
     Dates: start: 201609, end: 2017
  4. CLONAZEPAM. [Concomitant]
     Active Substance: CLONAZEPAM
     Dosage: 0.5 MG, ONCE A DAY
     Route: 048
     Dates: start: 20170516
  5. LYRICA [Suspect]
     Active Substance: PREGABALIN
     Dosage: 100 MG, TWO TIMES A DAY
     Route: 048
     Dates: start: 20170410, end: 2017
  6. MELATONIN [Concomitant]
     Active Substance: MELATONIN
     Indication: INSOMNIA
     Dosage: DOSAGE FORM: UNSPECIFIED
     Route: 048
     Dates: start: 201609, end: 201705
  7. CLONAZEPAM. [Concomitant]
     Active Substance: CLONAZEPAM
     Indication: AGITATION
     Dosage: 1 MG, TWO TIMES A DAY
     Dates: start: 20170508

REACTIONS (6)
  - Product use issue [Unknown]
  - Anxiety [Not Recovered/Not Resolved]
  - Hyperprolactinaemia [Recovered/Resolved]
  - Condition aggravated [Not Recovered/Not Resolved]
  - Joint stiffness [Recovered/Resolved]
  - Galactorrhoea [Recovered/Resolved]

NARRATIVE: CASE EVENT DATE: 201609
